FAERS Safety Report 8531318-9 (Version None)
Quarter: 2012Q3

REPORT INFORMATION
  Report Type: 
  Country: None (occurrence: None)
  Receive Date: 20120723
  Receipt Date: 20120712
  Transmission Date: 20120928
  Serious: Yes (Other)
  Sender: FDA-Public Use
  Company Number: US-ASTRAZENECA-2012SE48579

PATIENT
  Age: 53 Year
  Sex: Male

DRUGS (2)
  1. NEXIUM [Suspect]
     Dosage: UNKNOWN DOSE TWICE DAILY
     Route: 048
  2. NEXIUM [Suspect]
     Dosage: UNKNOWN DOSE ONCE DAILY
     Route: 048

REACTIONS (3)
  - OESOPHAGEAL CARCINOMA [None]
  - DISEASE RECURRENCE [None]
  - DRUG INEFFECTIVE [None]
